FAERS Safety Report 5773614-4 (Version None)
Quarter: 2008Q2

REPORT INFORMATION
  Report Type: 
  Country: None (occurrence: None)
  Receive Date: 20080616
  Receipt Date: 20080201
  Transmission Date: 20081010
  Serious: No
  Sender: FDA-Public Use
  Company Number: US-BAYER-200810501BCC

PATIENT
  Age: 39 Year
  Sex: Female
  Weight: 66 kg

DRUGS (1)
  1. FINACEA [Suspect]
     Indication: ROSACEA
     Route: 061
     Dates: start: 20080116, end: 20080116

REACTIONS (3)
  - BURNING SENSATION [None]
  - INSOMNIA [None]
  - RASH PAPULAR [None]
